FAERS Safety Report 18122119 (Version 6)
Quarter: 2020Q4

REPORT INFORMATION
  Report Type: Report from Study
  Country: BR (occurrence: BR)
  Receive Date: 20200806
  Receipt Date: 20201204
  Transmission Date: 20210113
  Serious: Yes (Death, Hospitalization)
  Sender: FDA-Public Use
  Company Number: BR-ROCHE-2652680

PATIENT
  Age: 48 Year
  Sex: Female
  Weight: 65 kg

DRUGS (35)
  1. TOCILIZUMAB. [Suspect]
     Active Substance: TOCILIZUMAB
     Indication: COVID-19 PNEUMONIA
     Dosage: DATE OF MOST RECENT DOSE OF TOCILIZUMAB PRIOR TO SAE ONSET: 29/JULY/2020 AT 19:50 HOURS
     Route: 042
     Dates: start: 20200729
  2. OMEPRAZOLE. [Concomitant]
     Active Substance: OMEPRAZOLE
     Dates: start: 20200728, end: 20200731
  3. MEROPENEM. [Concomitant]
     Active Substance: MEROPENEM
     Indication: BACTERIAL INFECTION
     Dates: start: 20200801, end: 20200801
  4. LASIX [Concomitant]
     Active Substance: FUROSEMIDE
     Indication: PROPHYLAXIS AGAINST GASTROINTESTINAL ULCER
     Dates: start: 20200730, end: 20200730
  5. NORADRENALINE [Concomitant]
     Active Substance: NOREPINEPHRINE
     Indication: HAEMODYNAMIC INSTABILITY
     Dates: start: 20200729, end: 20200731
  6. TAMIFLU [Concomitant]
     Active Substance: OSELTAMIVIR PHOSPHATE
     Dosage: SUSPECT OF INFLUENZA
     Dates: start: 20200728, end: 20200729
  7. INSULIN [Concomitant]
     Active Substance: INSULIN NOS
     Indication: DIABETES MELLITUS
     Dates: start: 20200729
  8. ROCURONIO [Concomitant]
     Active Substance: ROCURONIUM BROMIDE
     Dates: start: 20200731, end: 20200731
  9. AZITHROMYCIN ANHYDROUS. [Concomitant]
     Active Substance: AZITHROMYCIN ANHYDROUS
     Indication: COVID-19
     Dates: start: 20200728, end: 20200801
  10. MEROPENEM. [Concomitant]
     Active Substance: MEROPENEM
     Dates: start: 20200731, end: 20200801
  11. FENTANILA [Concomitant]
     Dates: start: 20200729, end: 20200731
  12. TAZOCIN [Concomitant]
     Active Substance: PIPERACILLIN SODIUM\TAZOBACTAM SODIUM
     Indication: COVID-19
     Dates: start: 20200728, end: 20200729
  13. MAGNESIUM SULFATE. [Concomitant]
     Active Substance: MAGNESIUM SULFATE
     Indication: HYPOMAGNESAEMIA
     Dates: start: 20200728, end: 20200728
  14. INSULIN [Concomitant]
     Active Substance: INSULIN NOS
     Dates: start: 20200801, end: 20200801
  15. VANCOMYCIN [Concomitant]
     Active Substance: VANCOMYCIN
     Indication: BACTERIAL INFECTION
     Dates: start: 20200731, end: 20200801
  16. DORMONID [Concomitant]
     Active Substance: MIDAZOLAM MALEATE
     Dates: start: 20200729, end: 20200731
  17. POTASSIUM PHOSPHATE [Concomitant]
     Active Substance: POTASSIUM PHOSPHATE
     Indication: HYPOKALAEMIA
  18. OMEPRAZOLE. [Concomitant]
     Active Substance: OMEPRAZOLE
     Indication: PROPHYLAXIS
     Dates: start: 20200728, end: 20200731
  19. ENCRISE [Concomitant]
     Dates: start: 20200730, end: 20200730
  20. HEPARIN [Concomitant]
     Active Substance: HEPARIN SODIUM
     Dosage: 1 AMPULE
     Dates: start: 20200731, end: 20200801
  21. PLAMET [Concomitant]
     Active Substance: BROMOPRIDE
     Dates: start: 20200728, end: 20200801
  22. PROPOFOL. [Concomitant]
     Active Substance: PROPOFOL
     Dates: start: 20200729, end: 20200729
  23. THIAMINE. [Concomitant]
     Active Substance: THIAMINE
     Indication: SEPTIC SHOCK
     Dates: start: 20200731, end: 20200801
  24. ENOXAPARIN [Concomitant]
     Active Substance: ENOXAPARIN
     Indication: PROPHYLAXIS
     Dosage: PROPHYLAXIS OF VENOUS THROMBOEMBOLISM
     Dates: start: 20200728, end: 20200731
  25. PRECEDEX [Concomitant]
     Active Substance: DEXMEDETOMIDINE HYDROCHLORIDE
     Indication: ANXIETY
     Dates: start: 20200728
  26. DEXAMETHASONE. [Concomitant]
     Active Substance: DEXAMETHASONE
     Indication: COVID-19
     Dates: start: 20200728, end: 20200801
  27. DIPYRONE [Concomitant]
     Active Substance: DIPYRONE
     Indication: COVID-19
     Dates: start: 20200728, end: 20200801
  28. INSULIN [Concomitant]
     Active Substance: INSULIN NOS
     Dates: start: 20200730, end: 20200730
  29. POTASSIUM PHOSPHATE [Concomitant]
     Active Substance: POTASSIUM PHOSPHATE
     Indication: HYPOPHOSPHATAEMIA
     Dates: start: 20200731, end: 20200731
  30. ROCURONIO [Concomitant]
     Active Substance: ROCURONIUM BROMIDE
     Dates: start: 20200729, end: 20200729
  31. REMDESIVIR. [Suspect]
     Active Substance: REMDESIVIR
     Indication: COVID-19 PNEUMONIA
     Dosage: LOADING DOSE ON DAY 1, AND THEN A ONCE-DAILY MAINTENANCE DOSE FROM DAYS 2-10.?ON 30/JUL/2020; AT 15:
     Route: 042
     Dates: start: 20200729
  32. BROMOPRIDE [Concomitant]
     Active Substance: BROMOPRIDE
     Indication: COVID-19
     Dates: start: 20200728
  33. INSULIN [Concomitant]
     Active Substance: INSULIN NOS
     Dates: start: 20200728, end: 20200728
  34. HIDROCORTISONA [Concomitant]
     Active Substance: HYDROCORTISONE
     Dates: start: 20200801, end: 20200801
  35. INSULIN [Concomitant]
     Active Substance: INSULIN NOS
     Dates: start: 20200730, end: 20200730

REACTIONS (3)
  - Acidosis [Not Recovered/Not Resolved]
  - Multiple organ dysfunction syndrome [Fatal]
  - Acute kidney injury [Not Recovered/Not Resolved]

NARRATIVE: CASE EVENT DATE: 20200729
